FAERS Safety Report 18528429 (Version 13)
Quarter: 2025Q1

REPORT INFORMATION
  Report Type: Report from Study
  Country: US (occurrence: US)
  Receive Date: 20201120
  Receipt Date: 20250117
  Transmission Date: 20250409
  Serious: Yes (Hospitalization, Other)
  Sender: TAKEDA
  Company Number: US-SHIRE-US202020167

PATIENT
  Sex: Female
  Weight: 107 kg

DRUGS (10)
  1. HUMAN IMMUNOGLOBULIN G [Suspect]
     Active Substance: HUMAN IMMUNOGLOBULIN G
     Indication: Immunodeficiency common variable
     Dosage: 16 GRAM, 1/WEEK
     Dates: start: 20170420
  2. HUMAN IMMUNOGLOBULIN G [Suspect]
     Active Substance: HUMAN IMMUNOGLOBULIN G
     Indication: Primary immunodeficiency syndrome
  3. DIPHENHYDRAMINE [Concomitant]
     Active Substance: DIPHENHYDRAMINE
     Indication: Product used for unknown indication
  4. POTASSIUM [Concomitant]
     Active Substance: POTASSIUM
     Indication: Product used for unknown indication
  5. EPINEPHRINE [Concomitant]
     Active Substance: EPINEPHRINE
     Indication: Product used for unknown indication
  6. ZYRTEC [Concomitant]
     Active Substance: CETIRIZINE HYDROCHLORIDE
     Indication: Product used for unknown indication
  7. ACETAMINOPHEN [Concomitant]
     Active Substance: ACETAMINOPHEN
     Indication: Product used for unknown indication
  8. MONTELUKAST SODIUM [Concomitant]
     Active Substance: MONTELUKAST SODIUM
     Indication: Product used for unknown indication
  9. LIDOCAINE [Concomitant]
     Active Substance: LIDOCAINE
     Indication: Product used for unknown indication
  10. DIPHENHYDRAMINE HYDROCHLORIDE [Concomitant]
     Active Substance: DIPHENHYDRAMINE HYDROCHLORIDE

REACTIONS (21)
  - Lymphoma [Unknown]
  - Renal neoplasm [Unknown]
  - COVID-19 pneumonia [Unknown]
  - Pneumonia [Unknown]
  - Lung disorder [Unknown]
  - Bacterial infection [Unknown]
  - Spleen disorder [Unknown]
  - Urinary tract infection [Unknown]
  - Bacterial vaginosis [Unknown]
  - Illness [Unknown]
  - Weight increased [Unknown]
  - Menopause [Unknown]
  - COVID-19 [Not Recovered/Not Resolved]
  - Platelet count decreased [Unknown]
  - Nasopharyngitis [Unknown]
  - Insurance issue [Unknown]
  - Product dose omission issue [Unknown]
  - Product use issue [Unknown]
  - Upper respiratory tract infection [Unknown]
  - White blood cell count decreased [Unknown]
  - Injection site reaction [Unknown]
